FAERS Safety Report 18296745 (Version 5)
Quarter: 2021Q2

REPORT INFORMATION
  Report Type: Spontaneous
  Country: US (occurrence: US)
  Receive Date: 20200922
  Receipt Date: 20210608
  Transmission Date: 20210717
  Serious: Yes (Other)
  Sender: FDA-Public Use
  Company Number: US-PFIZER INC-2020357532

PATIENT
  Age: 64 Year
  Sex: Male
  Weight: 144 kg

DRUGS (4)
  1. CADUET [Suspect]
     Active Substance: AMLODIPINE BESYLATE\ATORVASTATIN CALCIUM
     Indication: HYPERTENSION
  2. CADUET [Suspect]
     Active Substance: AMLODIPINE BESYLATE\ATORVASTATIN CALCIUM
     Indication: HYPERLIPIDAEMIA
     Dosage: 10?20 MG DAILY
     Route: 048
     Dates: start: 20210526
  3. CADUET [Suspect]
     Active Substance: AMLODIPINE BESYLATE\ATORVASTATIN CALCIUM
     Indication: DYSLIPIDAEMIA
  4. CADUET [Suspect]
     Active Substance: AMLODIPINE BESYLATE\ATORVASTATIN CALCIUM
     Indication: ESSENTIAL HYPERTENSION
     Dosage: 1 DF, DAILY (TAKE ONE TAB BY MOUTH DAILY)
     Route: 048

REACTIONS (5)
  - Stress [Unknown]
  - Diabetes mellitus [Unknown]
  - Prostate cancer [Unknown]
  - Fatigue [Unknown]
  - Bedridden [Unknown]
